FAERS Safety Report 4472885-4 (Version None)
Quarter: 2004Q4

REPORT INFORMATION
  Report Type: 
  Country: None (occurrence: None)
  Receive Date: 20041012
  Receipt Date: 20041012
  Transmission Date: 20050328
  Serious: Yes (Hospitalization)
  Sender: FDA-Public Use
  Company Number: None

PATIENT
  Age: 68 Year
  Sex: Female

DRUGS (1)
  1. DISOPYRAMIDE [Suspect]
     Dosage: 100 MG Q 12H

REACTIONS (2)
  - ATRIOVENTRICULAR BLOCK COMPLETE [None]
  - VENTRICULAR TACHYCARDIA [None]
